FAERS Safety Report 6268549-7 (Version None)
Quarter: 2009Q3

REPORT INFORMATION
  Report Type: 
  Country: None (occurrence: None)
  Receive Date: 20090713
  Receipt Date: 20090713
  Transmission Date: 20100115
  Serious: Yes (Life-Threatening, Hospitalization)
  Sender: FDA-Public Use
  Company Number: None

PATIENT
  Age: 18 Year
  Sex: Female
  Weight: 44.4525 kg

DRUGS (1)
  1. NUVARING [Suspect]
     Indication: CONTRACEPTION
     Dosage: 1 3WKS IN 1WK OUT VAG
     Route: 067
     Dates: start: 20080424, end: 20090429

REACTIONS (2)
  - ACUTE HEPATIC FAILURE [None]
  - LIVER INJURY [None]
